FAERS Safety Report 8482452-3 (Version None)
Quarter: 2012Q3

REPORT INFORMATION
  Report Type: 
  Country: None (occurrence: None)
  Receive Date: 20120702
  Receipt Date: 20120625
  Transmission Date: 20120928
  Serious: Yes (Hospitalization)
  Sender: FDA-Public Use
  Company Number: JP-GLAXOSMITHKLINE-B0809927A

PATIENT
  Sex: Female

DRUGS (5)
  1. PAXIL [Concomitant]
     Indication: DEPRESSION
     Dosage: 10MG PER DAY
     Route: 048
     Dates: start: 20120406, end: 20120426
  2. PAXIL [Concomitant]
     Dosage: 20MG PER DAY
     Route: 048
     Dates: start: 20120426, end: 20120514
  3. SENIRAN [Concomitant]
     Indication: ANXIETY
     Dosage: 4MG PER DAY
     Route: 048
     Dates: start: 20120406, end: 20120514
  4. LAMICTAL [Suspect]
     Indication: MOOD ALTERED
     Dosage: 25MG PER DAY
     Route: 048
     Dates: start: 20120406, end: 20120426
  5. LAMICTAL [Suspect]
     Dosage: 50MG PER DAY
     Route: 048
     Dates: start: 20120426, end: 20120514

REACTIONS (8)
  - STEVENS-JOHNSON SYNDROME [None]
  - OEDEMA MOUTH [None]
  - PERIPROCTITIS [None]
  - EYE PRURITUS [None]
  - ANAL PRURITUS [None]
  - LYMPHOCYTE STIMULATION TEST POSITIVE [None]
  - EYE SWELLING [None]
  - RASH GENERALISED [None]
